FAERS Safety Report 15720641 (Version 2)
Quarter: 2018Q4

REPORT INFORMATION
  Report Type: Spontaneous
  Country: JP (occurrence: JP)
  Receive Date: 20181213
  Receipt Date: 20181221
  Transmission Date: 20190205
  Serious: Yes (Other)
  Sender: FDA-Public Use
  Company Number: JP-009507513-1812JPN001601J

PATIENT
  Age: 7 Decade

DRUGS (1)
  1. KEYTRUDA [Suspect]
     Active Substance: PEMBROLIZUMAB
     Indication: NON-SMALL CELL LUNG CANCER
     Dosage: UNK
     Route: 041

REACTIONS (4)
  - Decreased appetite [Recovering/Resolving]
  - Meningitis [Not Recovered/Not Resolved]
  - Muscular weakness [Recovering/Resolving]
  - Headache [Recovering/Resolving]
